FAERS Safety Report 14439274 (Version 3)
Quarter: 2018Q2

REPORT INFORMATION
  Report Type: Report from Study
  Country: EC (occurrence: EC)
  Receive Date: 20180125
  Receipt Date: 20180612
  Transmission Date: 20180711
  Serious: Yes (Death, Hospitalization)
  Sender: FDA-Public Use
  Company Number: PHHY2018EC009660

PATIENT
  Age: 78 Year
  Sex: Male

DRUGS (1)
  1. ENTRESTO [Suspect]
     Active Substance: SACUBITRIL\VALSARTAN
     Indication: CARDIAC FAILURE
     Dosage: 50 MG, BID (24MG OF SACUBITRIL AND 26MG OF VALSARTAN)
     Route: 048
     Dates: start: 20171022

REACTIONS (2)
  - Cardio-respiratory arrest [Fatal]
  - Infarction [Fatal]

NARRATIVE: CASE EVENT DATE: 20171229
